FAERS Safety Report 13786034 (Version 3)
Quarter: 2018Q3

REPORT INFORMATION
  Report Type: Spontaneous
  Country: FR (occurrence: FR)
  Receive Date: 20170725
  Receipt Date: 20180823
  Transmission Date: 20181010
  Serious: Yes (Hospitalization)
  Sender: FDA-Public Use
  Company Number: FR-ROCHE-1967461

PATIENT
  Age: 79 Year
  Sex: Female
  Weight: 59 kg

DRUGS (12)
  1. COTELLIC [Suspect]
     Active Substance: COBIMETINIB
     Indication: METASTATIC MALIGNANT MELANOMA
     Route: 048
     Dates: start: 20170620, end: 20170630
  2. NICORANDIL [Concomitant]
     Active Substance: NICORANDIL
  3. CETIRIZINE [Concomitant]
     Active Substance: CETIRIZINE HYDROCHLORIDE
  4. RIVAROXABAN [Concomitant]
     Active Substance: RIVAROXABAN
  5. FUROSEMIDE. [Concomitant]
     Active Substance: FUROSEMIDE
  6. ZELBORAF [Suspect]
     Active Substance: VEMURAFENIB
     Indication: METASTATIC MALIGNANT MELANOMA
     Route: 048
     Dates: start: 20170620, end: 20170630
  7. SIMVASTATINE [Concomitant]
     Active Substance: SIMVASTATIN
  8. NEBIVOLOL. [Concomitant]
     Active Substance: NEBIVOLOL
  9. PERINDOPRIL [Concomitant]
     Active Substance: PERINDOPRIL
  10. EZETIMIBE. [Concomitant]
     Active Substance: EZETIMIBE
  11. MEMANTINE. [Concomitant]
     Active Substance: MEMANTINE
  12. OXAZEPAM. [Concomitant]
     Active Substance: OXAZEPAM

REACTIONS (1)
  - Drug reaction with eosinophilia and systemic symptoms [Recovered/Resolved]

NARRATIVE: CASE EVENT DATE: 20170701
